FAERS Safety Report 7627098-1 (Version None)
Quarter: 2011Q3

REPORT INFORMATION
  Report Type: 
  Country: None (occurrence: None)
  Receive Date: 20110701
  Receipt Date: 20110208
  Transmission Date: 20111222
  Serious: Yes (Other)
  Sender: FDA-Public Use
  Company Number: 7041429

PATIENT
  Age: 37 Year
  Sex: Female
  Weight: 54 kg

DRUGS (5)
  1. ASPIRIN [Concomitant]
  2. REBIF [Suspect]
     Indication: PRODUCT USED FOR UNKNOWN INDICATION
     Dosage: 44 MCG, 3 IN 1 WK, SUBCUTANEOUS, 22 MCG, 3 IN 1 WK, SUBCUTANEOUS
     Route: 058
     Dates: start: 20110104, end: 20110116
  3. REBIF [Suspect]
     Indication: PRODUCT USED FOR UNKNOWN INDICATION
     Dosage: 44 MCG, 3 IN 1 WK, SUBCUTANEOUS, 22 MCG, 3 IN 1 WK, SUBCUTANEOUS
     Route: 058
     Dates: start: 20110410
  4. UNSPECIFIED MEDICATION (ALL OTHER THERAPEUTIC  PRODUCTS) [Concomitant]
  5. MULTI-VITAMINS [Concomitant]

REACTIONS (4)
  - NAUSEA [None]
  - INFLUENZA LIKE ILLNESS [None]
  - PYREXIA [None]
  - CONVULSION [None]
